FAERS Safety Report 25197163 (Version 2)
Quarter: 2025Q3

REPORT INFORMATION
  Report Type: Spontaneous
  Country: US (occurrence: US)
  Receive Date: 20250415
  Receipt Date: 20250708
  Transmission Date: 20251020
  Serious: No
  Sender: CSL BEHRING
  Company Number: US-BEH-2025201419

PATIENT
  Sex: Male

DRUGS (12)
  1. PRIVIGEN [Suspect]
     Active Substance: HUMAN IMMUNOGLOBULIN G
     Indication: Nervous system disorder
     Dosage: 75 G, QMT
     Route: 042
     Dates: start: 202301
  2. FINASTERIDE [Concomitant]
     Active Substance: FINASTERIDE
  3. ASPIRIN [Concomitant]
     Active Substance: ASPIRIN
  4. DULOXETINE [Concomitant]
     Active Substance: DULOXETINE
  5. PRILOSEC [Concomitant]
     Active Substance: OMEPRAZOLE MAGNESIUM
  6. ROSUVASTATIN [Concomitant]
     Active Substance: ROSUVASTATIN
  7. TAMSULOSIN [Concomitant]
     Active Substance: TAMSULOSIN
  8. TYLENOL [Concomitant]
     Active Substance: ACETAMINOPHEN
  9. VITAMIN B [Concomitant]
     Active Substance: VITAMIN B
  10. VITAMIN D3 [Concomitant]
     Active Substance: CHOLECALCIFEROL
  11. VITAMIN E [Concomitant]
     Active Substance: .ALPHA.-TOCOPHEROL
  12. VITAMINS [Concomitant]
     Active Substance: VITAMINS

REACTIONS (7)
  - Coordination abnormal [Unknown]
  - Balance disorder [Unknown]
  - Fatigue [Unknown]
  - Muscular weakness [Unknown]
  - Mobility decreased [Unknown]
  - Poor quality sleep [Unknown]
  - Walking aid user [Unknown]
